FAERS Safety Report 10731557 (Version 1)
Quarter: 2015Q1

REPORT INFORMATION
  Report Type: Spontaneous
  Country: US (occurrence: US)
  Receive Date: 20150123
  Receipt Date: 20150123
  Transmission Date: 20150721
  Serious: Yes (Other)
  Sender: FDA-Public Use
  Company Number: US-CIPLA LTD.-2015US00423

PATIENT

DRUGS (5)
  1. CARBOPLATIN. [Suspect]
     Active Substance: CARBOPLATIN
     Indication: BREAST CANCER
     Dosage: (AREA UNDER CURVE 6) ONCE EVERY 3 WEEKS FOR FOUR CYCLES
  2. CYCLOPHOSPHAMIDE. [Suspect]
     Active Substance: CYCLOPHOSPHAMIDE
     Indication: BREAST CANCER
     Dosage: 600 MG/M2, ONCE EVERY 2 WEEKS FOR FOUR CYCLES
  3. PACLITAXEL. [Suspect]
     Active Substance: PACLITAXEL
     Indication: BREAST CANCER
     Dosage: 80MG/M2 ONCE PER WEEK FOR 12 WEEKS WHICH WAS FOLLOWED BY ONCE EVERY TWO WEEKS FOR 4 CYCLE
  4. DOXORUBICIN [Suspect]
     Active Substance: DOXORUBICIN
     Indication: BREAST CANCER
     Dosage: 60MG/M2, ONCE EVERY 2 WEEKS FOR FOUR CYCLES
  5. MYELOID GROWTH FACTOR SUPPORT [Concomitant]
     Indication: BREAST CANCER
     Dosage: UNK

REACTIONS (1)
  - Embolism [Unknown]
